FAERS Safety Report 22053393 (Version 22)
Quarter: 2024Q1

REPORT INFORMATION
  Report Type: Report from Study
  Country: CH (occurrence: CH)
  Receive Date: 20230302
  Receipt Date: 20240124
  Transmission Date: 20240409
  Serious: Yes (Hospitalization, Other)
  Sender: FDA-Public Use
  Company Number: CH-TAKEDA-2021TUS061573

PATIENT
  Sex: Male
  Weight: 46 kg

DRUGS (48)
  1. IDURSULFASE [Suspect]
     Active Substance: IDURSULFASE
     Indication: Mucopolysaccharidosis II
     Dosage: 3 DOSAGE FORM
     Route: 042
     Dates: start: 2008
  2. IDURSULFASE [Suspect]
     Active Substance: IDURSULFASE
     Dosage: 4 DOSAGE FORM
     Route: 042
  3. IDURSULFASE [Suspect]
     Active Substance: IDURSULFASE
     Dosage: 3 DOSAGE FORM
     Route: 042
  4. IDURSULFASE [Suspect]
     Active Substance: IDURSULFASE
     Dosage: 4 DOSAGE FORM
     Route: 042
  5. IDURSULFASE [Suspect]
     Active Substance: IDURSULFASE
     Dosage: 4 DOSAGE FORM
     Route: 042
  6. IDURSULFASE [Suspect]
     Active Substance: IDURSULFASE
     Dosage: 3 DOSAGE FORM
     Route: 042
  7. IDURSULFASE [Suspect]
     Active Substance: IDURSULFASE
     Dosage: 4 DOSAGE FORM
     Route: 042
  8. IDURSULFASE [Suspect]
     Active Substance: IDURSULFASE
     Dosage: 3 DOSAGE FORM, 1/WEEK
     Route: 042
  9. IDURSULFASE [Suspect]
     Active Substance: IDURSULFASE
     Dosage: 4 DOSAGE FORM, 1/WEEK
     Route: 042
  10. IDURSULFASE [Suspect]
     Active Substance: IDURSULFASE
     Dosage: 3 DOSAGE FORM, 1/WEEK
     Route: 042
  11. IDURSULFASE [Suspect]
     Active Substance: IDURSULFASE
     Dosage: 4 DOSAGE FORM, 1/WEEK
     Route: 042
  12. IDURSULFASE [Suspect]
     Active Substance: IDURSULFASE
     Dosage: 4 DOSAGE FORM
     Route: 042
  13. IDURSULFASE [Suspect]
     Active Substance: IDURSULFASE
     Dosage: 4 DOSAGE FORM
     Route: 042
  14. IDURSULFASE [Suspect]
     Active Substance: IDURSULFASE
     Dosage: 3 DOSAGE FORM
     Route: 042
  15. IDURSULFASE [Suspect]
     Active Substance: IDURSULFASE
     Dosage: 3 DOSAGE FORM
     Route: 042
  16. IDURSULFASE [Suspect]
     Active Substance: IDURSULFASE
     Dosage: 6 MILLIGRAM
     Route: 042
  17. IDURSULFASE [Suspect]
     Active Substance: IDURSULFASE
     Dosage: 3 DOSAGE FORM
     Route: 042
  18. IDURSULFASE [Suspect]
     Active Substance: IDURSULFASE
     Dosage: 3 DOSAGE FORM
     Route: 042
  19. IDURSULFASE [Suspect]
     Active Substance: IDURSULFASE
     Dosage: 4 DOSAGE FORM
     Route: 042
  20. IDURSULFASE [Suspect]
     Active Substance: IDURSULFASE
     Dosage: 4 DOSAGE FORM
     Route: 042
  21. IDURSULFASE [Suspect]
     Active Substance: IDURSULFASE
     Dosage: UNK
     Route: 042
  22. IDURSULFASE [Suspect]
     Active Substance: IDURSULFASE
     Dosage: 4 DOSAGE FORM
     Route: 042
  23. IDURSULFASE [Suspect]
     Active Substance: IDURSULFASE
     Dosage: 4 DOSAGE FORM
     Route: 042
  24. VOLTAREN [Concomitant]
     Active Substance: DICLOFENAC SODIUM
     Indication: Premedication
     Dosage: 50 MILLIGRAM
     Route: 048
     Dates: start: 2008
  25. CLEMASTINE FUMARATE [Concomitant]
     Active Substance: CLEMASTINE FUMARATE
     Indication: Premedication
     Dosage: 1 MILLIGRAM
     Route: 048
     Dates: start: 2008
  26. DIAMOX SEQUELS [Concomitant]
     Active Substance: ACETAZOLAMIDE
     Indication: Ocular melanoma
     Dosage: 250 MILLIGRAM
     Route: 065
     Dates: start: 2011
  27. CHOLECALCIFEROL [Concomitant]
     Active Substance: CHOLECALCIFEROL
     Indication: Prophylaxis
     Dosage: UNK
     Route: 048
     Dates: start: 2011
  28. FENTANYL [Concomitant]
     Active Substance: FENTANYL\FENTANYL CITRATE
     Indication: Neuralgia
     Dosage: 25 MICROGRAM, Q1HR
     Route: 062
     Dates: start: 2011
  29. SODIUM PICOSULFATE [Concomitant]
     Active Substance: SODIUM PICOSULFATE
     Indication: Constipation
     Dosage: UNK
     Route: 048
     Dates: start: 2011
  30. LIORESAL [Concomitant]
     Active Substance: BACLOFEN
     Indication: Neuralgia
     Dosage: 10 MILLIGRAM
     Route: 048
     Dates: start: 2011
  31. LIORESAL [Concomitant]
     Active Substance: BACLOFEN
     Dosage: 25 MILLIGRAM
     Route: 048
  32. LYRICA [Concomitant]
     Active Substance: PREGABALIN
     Indication: Neuralgia
     Dosage: 300 MILLIGRAM
     Route: 048
     Dates: start: 2011
  33. LISINOPRIL [Concomitant]
     Active Substance: LISINOPRIL
     Indication: Cardiac failure
     Dosage: 5 MILLIGRAM
     Route: 048
     Dates: start: 2011
  34. Maltofer [Concomitant]
     Indication: Prophylaxis
     Dosage: UNK
     Route: 048
     Dates: start: 2011
  35. MAGNESIUM ASPARTATE HYDROCHLORIDE [Concomitant]
     Active Substance: MAGNESIUM ASPARTATE HYDROCHLORIDE
     Indication: Prophylaxis
     Dosage: 5 MILLIGRAM
     Route: 048
     Dates: start: 2011
  36. FLUIMUCIL [Concomitant]
     Active Substance: ACETYLCYSTEINE
     Indication: Secretion discharge
     Dosage: UNK
     Route: 048
     Dates: start: 2011
  37. ZYRTEC [Concomitant]
     Active Substance: CETIRIZINE HYDROCHLORIDE
     Indication: Seasonal allergy
     Dosage: UNK
     Route: 048
     Dates: start: 2011
  38. ESOMEPRAZOLE [Concomitant]
     Active Substance: ESOMEPRAZOLE
     Indication: Prophylaxis
     Dosage: 20 MILLIGRAM
     Route: 048
     Dates: start: 2011
  39. ALBUTEROL SULFATE\IPRATROPIUM BROMIDE [Concomitant]
     Active Substance: ALBUTEROL SULFATE\IPRATROPIUM BROMIDE
     Indication: Premedication
     Dosage: 2.5 MILLILITER
     Route: 055
     Dates: start: 202101
  40. SERETIDE [Concomitant]
     Active Substance: FLUTICASONE PROPIONATE\SALMETEROL XINAFOATE
     Indication: Premedication
     Dosage: UNK
     Route: 055
     Dates: start: 202101
  41. DAFALGAN [Concomitant]
     Active Substance: ACETAMINOPHEN
     Indication: Pain
     Dosage: 1 GRAM
     Route: 048
     Dates: start: 2011
  42. Covid-19 vaccine [Concomitant]
     Dosage: UNK
     Route: 065
     Dates: start: 20211122
  43. ENOXAPARIN SODIUM [Concomitant]
     Active Substance: ENOXAPARIN SODIUM
     Indication: Product used for unknown indication
     Dosage: UNK UNK, Q6WEEKS
     Route: 065
  44. ENOXAPARIN SODIUM [Concomitant]
     Active Substance: ENOXAPARIN SODIUM
     Dosage: UNK UNK, QD
     Route: 065
  45. COLISTIMETHATE SODIUM [Concomitant]
     Active Substance: COLISTIMETHATE SODIUM
     Dosage: UNK
     Route: 050
     Dates: start: 20230123, end: 20230219
  46. CIPROFLOXACIN [Concomitant]
     Active Substance: CIPROFLOXACIN
     Dosage: 750 MILLIGRAM, BID
     Route: 065
  47. ASCORBIC ACID\MINERALS\VITAMINS [Concomitant]
     Active Substance: ASCORBIC ACID\MINERALS\VITAMINS
     Indication: Supplementation therapy
     Dosage: UNK
     Route: 048
     Dates: start: 2011
  48. DORZOVISION [Concomitant]
     Dosage: 1 DOSAGE FORM, TID
     Route: 065
     Dates: end: 20231214

REACTIONS (25)
  - Hyperthermia [Recovered/Resolved]
  - Diarrhoea [Recovered/Resolved]
  - Vomiting [Recovered/Resolved]
  - Tachycardia [Not Recovered/Not Resolved]
  - Pneumonia [Recovered/Resolved]
  - Urine abnormality [Recovered/Resolved]
  - Urine odour abnormal [Not Recovered/Not Resolved]
  - Acne [Recovered/Resolved]
  - Increased viscosity of bronchial secretion [Recovered/Resolved]
  - Blood pressure diastolic decreased [Not Recovered/Not Resolved]
  - Blood immunoglobulin G decreased [Not Recovered/Not Resolved]
  - Blood pressure systolic decreased [Not Recovered/Not Resolved]
  - Urinary tract infection [Recovered/Resolved]
  - Muscle spasms [Not Recovered/Not Resolved]
  - Decubitus ulcer [Recovered/Resolved]
  - Wound [Recovered/Resolved]
  - Lower limb fracture [Recovered/Resolved]
  - Abdominal rigidity [Recovered/Resolved]
  - Post procedural fever [Recovered/Resolved]
  - Calculus bladder [Not Recovered/Not Resolved]
  - Urinary tract spasm [Recovered/Resolved]
  - Vitamin B complex deficiency [Not Recovered/Not Resolved]
  - Folate deficiency [Not Recovered/Not Resolved]
  - Bronchial secretion retention [Recovered/Resolved]
  - Corneal thickening [Recovered/Resolved]

NARRATIVE: CASE EVENT DATE: 20230321
